FAERS Safety Report 17138303 (Version 1)
Quarter: 2019Q4

REPORT INFORMATION
  Report Type: Spontaneous
  Country: US (occurrence: US)
  Receive Date: 20191119
  Receipt Date: 20191119
  Transmission Date: 20200122
  Serious: No
  Sender: FDA-Public Use
  Company Number: None

PATIENT
  Age: 74 Year
  Sex: Female
  Weight: 54.43 kg

DRUGS (1)
  1. TYMLOS [Suspect]
     Active Substance: ABALOPARATIDE
     Indication: SENILE OSTEOPOROSIS
     Route: 058
     Dates: start: 201802

REACTIONS (5)
  - Red blood cell count decreased [None]
  - Product administered at inappropriate site [None]
  - Product prescribing issue [None]
  - Blood calcium decreased [None]
  - Circumstance or information capable of leading to medication error [None]
